FAERS Safety Report 6573821-7 (Version None)
Quarter: 2010Q1

REPORT INFORMATION
  Report Type: 
  Country: None (occurrence: None)
  Receive Date: 20100208
  Receipt Date: 20100128
  Transmission Date: 20100710
  Serious: Yes (Other)
  Sender: FDA-Public Use
  Company Number: JP-MERCK-1001USA00914

PATIENT
  Age: 58 Year
  Sex: Male

DRUGS (8)
  1. EMEND [Suspect]
     Indication: PROPHYLAXIS OF NAUSEA AND VOMITING
     Route: 048
     Dates: start: 20100106, end: 20100106
  2. EMEND [Suspect]
     Route: 048
     Dates: start: 20100107, end: 20100108
  3. BRIPLATIN [Concomitant]
     Route: 065
     Dates: start: 20100106, end: 20100106
  4. CAMPTOSAR [Concomitant]
     Route: 042
     Dates: start: 20100106, end: 20100106
  5. DEPAKENE [Concomitant]
     Route: 065
  6. DECADRON [Concomitant]
     Route: 048
     Dates: start: 20100106, end: 20100106
  7. NASEA [Concomitant]
     Route: 065
     Dates: start: 20100106, end: 20100106
  8. UNASYN [Concomitant]
     Route: 042
     Dates: start: 20100106, end: 20100106

REACTIONS (1)
  - CONVULSION [None]
